FAERS Safety Report 10224789 (Version 2)
Quarter: 2015Q2

REPORT INFORMATION
  Report Type: Spontaneous
  Country: FI (occurrence: FI)
  Receive Date: 20140609
  Receipt Date: 20150626
  Transmission Date: 20150821
  Serious: Yes (Disabling)
  Sender: FDA-Public Use
  Company Number: FI-UCBSA-123375

PATIENT
  Age: 63 Year
  Sex: Female

DRUGS (6)
  1. KEPPRA [Suspect]
     Active Substance: LEVETIRACETAM
     Indication: EPILEPSY
     Dosage: STRENGTH:1500 MG
     Route: 042
     Dates: start: 20140402
  2. KEPPRA [Suspect]
     Active Substance: LEVETIRACETAM
     Indication: EPILEPSY
     Dosage: 3000 MG, ONCE DAILY (QD); PER INTAKE: 1500 MGX2
     Route: 048
  3. PRIMASPAN [Concomitant]
     Indication: CARDIAC FIBRILLATION
     Dosage: 100 MG, ONCE DAILY (QD)
  4. LOSARTAN [Concomitant]
     Active Substance: LOSARTAN
     Indication: HYPERTONIA
     Dosage: 100 MG, ONCE DAILY (QD)
  5. BISOPROLOL [Concomitant]
     Active Substance: BISOPROLOL
     Indication: HYPERTONIA
     Dosage: 5 MG, ONCE DAILY (QD)
  6. ARCOXIA [Concomitant]
     Active Substance: ETORICOXIB
     Indication: PAIN
     Dosage: 90 MG, ONCE DAILY (QD)

REACTIONS (1)
  - Dysgeusia [Not Recovered/Not Resolved]

NARRATIVE: CASE EVENT DATE: 20140402
